FAERS Safety Report 17238048 (Version 1)
Quarter: 2020Q1

REPORT INFORMATION
  Report Type: Spontaneous
  Country: US (occurrence: US)
  Receive Date: 20200106
  Receipt Date: 20200106
  Transmission Date: 20200409
  Serious: No
  Sender: FDA-Public Use
  Company Number: US-PACIRA-201900134

PATIENT
  Sex: Female
  Weight: 59.8 kg

DRUGS (1)
  1. EXPAREL [Suspect]
     Active Substance: BUPIVACAINE
     Indication: MAMMOPLASTY
     Dosage: 266MG/20ML
     Dates: start: 20190424, end: 20190424

REACTIONS (2)
  - Urticaria [Recovered/Resolved]
  - Rash [Recovered/Resolved]

NARRATIVE: CASE EVENT DATE: 20190428
